FAERS Safety Report 10177089 (Version 2)
Quarter: 2014Q2

REPORT INFORMATION
  Report Type: Spontaneous
  Country: JP (occurrence: JP)
  Receive Date: 20140516
  Receipt Date: 20140604
  Transmission Date: 20141212
  Serious: Yes (Hospitalization, Disabling, Other)
  Sender: FDA-Public Use
  Company Number: JP-PFIZER INC-2014133575

PATIENT
  Age: 65 Year
  Sex: Female

DRUGS (1)
  1. LYRICA [Suspect]
     Dosage: UNK
     Route: 048
     Dates: start: 201308, end: 201308

REACTIONS (1)
  - Erythema multiforme [Unknown]
